FAERS Safety Report 18355032 (Version 2)
Quarter: 2020Q4

REPORT INFORMATION
  Report Type: Spontaneous
  Country: GB (occurrence: GB)
  Receive Date: 20201007
  Receipt Date: 20201013
  Transmission Date: 20210114
  Serious: Yes (Hospitalization, Other)
  Sender: FDA-Public Use
  Company Number: GB-SA-2020SA268060

PATIENT

DRUGS (4)
  1. LIDOCAINE. [Concomitant]
     Active Substance: LIDOCAINE
     Dosage: 5 ML
  2. BUPIVACAINE. [Suspect]
     Active Substance: BUPIVACAINE
     Indication: OSTEOARTHRITIS
     Dosage: 6 ML, 1X
     Route: 014
  3. TRIAMCINOLONE ACETONIDE. [Suspect]
     Active Substance: TRIAMCINOLONE ACETONIDE
     Indication: OSTEOARTHRITIS
     Dosage: 40 MG, 1X, DILUTED WITH 6 ML OF 0.25% BUPIVACAINE
     Route: 014
  4. CHLORHEXIDINE [Concomitant]
     Active Substance: CHLORHEXIDINE
     Dosage: COPIOUS AMOUNTS
     Route: 061

REACTIONS (7)
  - Pain [Recovering/Resolving]
  - Groin pain [Recovering/Resolving]
  - Candida infection [Recovering/Resolving]
  - C-reactive protein increased [Recovering/Resolving]
  - Femur fracture [Recovering/Resolving]
  - Arthralgia [Recovering/Resolving]
  - Arthritis bacterial [Recovering/Resolving]
